FAERS Safety Report 24747329 (Version 2)
Quarter: 2024Q4

REPORT INFORMATION
  Report Type: Spontaneous
  Country: ES (occurrence: ES)
  Receive Date: 20241218
  Receipt Date: 20241230
  Transmission Date: 20250114
  Serious: Yes (Hospitalization)
  Sender: AUROBINDO
  Company Number: ES-AUROBINDO-AUR-APL-2024-060395

PATIENT
  Age: 97 Year
  Sex: Female

DRUGS (10)
  1. FENTANYL TRANSDERMAL SYSTEM [Suspect]
     Active Substance: FENTANYL
     Indication: Rectal prolapse
     Dosage: 25 MICROGRAM, EVERY HOUR
     Route: 065
  2. FENTANYL TRANSDERMAL SYSTEM [Suspect]
     Active Substance: FENTANYL
     Indication: Pain
  3. ACETAMINOPHEN [Suspect]
     Active Substance: ACETAMINOPHEN
     Indication: Rectal prolapse
     Dosage: UNK
     Route: 065
  4. ACETAMINOPHEN [Suspect]
     Active Substance: ACETAMINOPHEN
     Indication: Pain
  5. DIPYRONE [Suspect]
     Active Substance: DIPYRONE
     Indication: Rectal prolapse
     Dosage: UNK
     Route: 065
  6. DIPYRONE [Suspect]
     Active Substance: DIPYRONE
     Indication: Pain
  7. DEXAMETHASONE [Concomitant]
     Active Substance: DEXAMETHASONE
     Indication: Oedema mucosal
     Dosage: 4 MILLIGRAM, TWO TIMES A DAY (4 MILLIGRAM, BID)
     Route: 048
  8. DEXAMETHASONE [Concomitant]
     Active Substance: DEXAMETHASONE
     Dosage: 4 MILLIGRAM, ONCE A DAY (4 MILLIGRAM, QD)
     Route: 048
  9. METHYLENE BLUE [Concomitant]
     Active Substance: METHYLENE BLUE
     Indication: Pain
     Dosage: 0.1 PERCENT (EVERY 12 HOURS AS NEEDED)
     Route: 061
  10. METHYLENE BLUE [Concomitant]
     Active Substance: METHYLENE BLUE
     Indication: Rectal prolapse

REACTIONS (1)
  - Treatment failure [Unknown]
